FAERS Safety Report 11044848 (Version 2)
Quarter: 2015Q2

REPORT INFORMATION
  Report Type: Spontaneous
  Country: US (occurrence: None)
  Receive Date: 20150415
  Receipt Date: 20150626
  Transmission Date: 20150821
  Serious: Yes (Other)
  Sender: FDA-Public Use
  Company Number: ADR-2015-00654

PATIENT
  Age: 42 Year
  Sex: Male

DRUGS (5)
  1. VITAMIN D [Suspect]
     Active Substance: CHOLECALCIFEROL
  2. DARIFENACIN [Suspect]
     Active Substance: DARIFENACIN
  3. LIDOCAINE. [Suspect]
     Active Substance: LIDOCAINE
  4. LIORESAL [Suspect]
     Active Substance: BACLOFEN
     Indication: MUSCLE SPASTICITY
     Dates: start: 20150210
  5. BISACODYL. [Suspect]
     Active Substance: BISACODYL

REACTIONS (7)
  - Drug withdrawal syndrome [None]
  - Dizziness [None]
  - Priapism [None]
  - Mobility decreased [None]
  - Hypertonia [None]
  - Device malfunction [None]
  - Abasia [None]
